FAERS Safety Report 8236554-7 (Version None)
Quarter: 2012Q1

REPORT INFORMATION
  Report Type: 
  Country: None (occurrence: None)
  Receive Date: 20120326
  Receipt Date: 20120326
  Transmission Date: 20120608
  Serious: No
  Sender: FDA-Public Use
  Company Number: None

PATIENT
  Age: 75 Year
  Sex: Female
  Weight: 47.6277 kg

DRUGS (1)
  1. LINCOCIN [Suspect]
     Indication: INFECTION
     Dosage: 600 MG 1X SHOT
     Dates: start: 20111227

REACTIONS (8)
  - OEDEMA PERIPHERAL [None]
  - INADEQUATE ANALGESIA [None]
  - NERVOUS SYSTEM DISORDER [None]
  - HYPERAESTHESIA [None]
  - PAIN IN EXTREMITY [None]
  - PARAESTHESIA [None]
  - BURNING SENSATION [None]
  - RASH ERYTHEMATOUS [None]
